FAERS Safety Report 10207439 (Version 1)
Quarter: 2014Q2

REPORT INFORMATION
  Report Type: Spontaneous
  Country: US (occurrence: US)
  Receive Date: 20140530
  Receipt Date: 20140530
  Transmission Date: 20141212
  Serious: No
  Sender: FDA-Public Use
  Company Number: US-BRISTOL-MYERS SQUIBB COMPANY-18998468

PATIENT
  Age: 49 Year
  Sex: Male
  Weight: 70.75 kg

DRUGS (1)
  1. SUSTIVA CAPS [Suspect]
     Route: 048

REACTIONS (2)
  - Hypersensitivity [Unknown]
  - Liver function test abnormal [Unknown]
